FAERS Safety Report 7490754-2 (Version None)
Quarter: 2011Q2

REPORT INFORMATION
  Report Type: 
  Country: None (occurrence: None)
  Receive Date: 20110519
  Receipt Date: 20080714
  Transmission Date: 20111010
  Serious: Yes (Death, Hospitalization, Other)
  Sender: FDA-Public Use
  Company Number: US-BAYER-200827822NA

PATIENT
  Age: 55 Year
  Sex: Male
  Weight: 118 kg

DRUGS (23)
  1. PROSTIGMIN BROMIDE [Concomitant]
     Dosage: UNK
     Dates: start: 20070420, end: 20070420
  2. TRASYLOL [Suspect]
     Dosage: 50CC PER HOUR
     Route: 042
     Dates: start: 20070420, end: 20070420
  3. PROTAMINE SULFATE [Concomitant]
     Dosage: 50 MG, UNK
     Route: 042
     Dates: start: 20070420, end: 20070420
  4. PLAVIX [Concomitant]
     Dosage: 75 MG, QD
     Route: 048
     Dates: start: 20070416, end: 20070418
  5. CEFUROXIME [Concomitant]
     Dosage: 1.5 G, UNK
     Route: 042
     Dates: start: 20070420, end: 20070420
  6. ROBINUL [Concomitant]
     Dosage: UNK
     Dates: start: 20070420, end: 20070420
  7. FENTANYL [Concomitant]
     Dosage: UNK
     Dates: start: 20070420, end: 20070420
  8. DOBUTAMINE HYDROCHLORIDE [Concomitant]
     Dosage: 5 MG, UNK
     Route: 042
  9. VASOTEC [Concomitant]
     Dosage: 20 MG, BID
     Route: 048
  10. KANAMYCIN [Concomitant]
     Dosage: UNK
     Route: 061
     Dates: start: 20070420, end: 20070420
  11. TRASYLOL [Suspect]
     Indication: CORONARY ARTERY BYPASS
     Dosage: 1 ML
     Route: 042
     Dates: start: 20070420, end: 20070420
  12. ACETYLSALICYLIC ACID SRT [Concomitant]
     Dosage: 81 MG, QD
     Route: 048
     Dates: start: 20070417
  13. LIPITOR [Concomitant]
     Dosage: 40 MG, QD
     Route: 048
     Dates: start: 20070417, end: 20070420
  14. COREG [Concomitant]
     Dosage: 6.25 MG, BID
     Route: 048
  15. HEPARIN [Concomitant]
     Dosage: 5000 U, UNK
     Route: 042
  16. ALLOPURINOL [Concomitant]
     Dosage: 100 MG, BID
     Route: 048
     Dates: start: 20070418, end: 20070420
  17. PAPAVERINE [Concomitant]
     Dosage: UNK
     Route: 061
     Dates: start: 20070420, end: 20070420
  18. PLASMA [Concomitant]
  19. LASIX [Concomitant]
     Dosage: 40 MG, BID
     Dates: start: 20070416
  20. TRASYLOL [Suspect]
     Indication: MITRAL VALVE REPAIR
     Dosage: 2000000 KIU
     Route: 042
     Dates: start: 20070420, end: 20070420
  21. VASOTEC [Concomitant]
     Dosage: 2.5 MG
     Route: 042
     Dates: start: 20070416, end: 20070419
  22. LIDOCAINE [Concomitant]
     Dosage: 100 MG, UNK
     Dates: start: 20070420
  23. LOPRESSOR [Concomitant]
     Dosage: UNK
     Dates: start: 20070420

REACTIONS (30)
  - DIALYSIS [None]
  - RESPIRATORY FAILURE [None]
  - ATELECTASIS [None]
  - RENAL FAILURE ACUTE [None]
  - ISCHAEMIC STROKE [None]
  - EMOTIONAL DISORDER [None]
  - UNRESPONSIVE TO STIMULI [None]
  - SPUTUM CULTURE POSITIVE [None]
  - FEAR [None]
  - GENERAL PHYSICAL HEALTH DETERIORATION [None]
  - ACTIVITIES OF DAILY LIVING IMPAIRED [None]
  - LIVER FUNCTION TEST ABNORMAL [None]
  - HYPOXIC-ISCHAEMIC ENCEPHALOPATHY [None]
  - ASTHENIA [None]
  - ANHEDONIA [None]
  - LIVER INJURY [None]
  - CANDIDIASIS [None]
  - UNEVALUABLE EVENT [None]
  - INJURY [None]
  - SHOCK [None]
  - CONTINUOUS HAEMODIAFILTRATION [None]
  - ANAEMIA [None]
  - PNEUMONIA [None]
  - RENAL FAILURE [None]
  - EMOTIONAL DISTRESS [None]
  - ANXIETY [None]
  - CARDIOGENIC SHOCK [None]
  - PAIN [None]
  - ADVERSE EVENT [None]
  - SEPSIS [None]
